FAERS Safety Report 4929464-1 (Version None)
Quarter: 2006Q1

REPORT INFORMATION
  Report Type: 
  Country: None (occurrence: None)
  Receive Date: 20060224
  Receipt Date: 20060209
  Transmission Date: 20060701
  Serious: Yes (Death, Other)
  Sender: FDA-Public Use
  Company Number: GBR-2006-0002096

PATIENT
  Age: 42 Year
  Sex: Male

DRUGS (1)
  1. OXYNORM [Suspect]
     Indication: CANCER PAIN
     Dosage: 165 MG, DAILY, SUBCUTANEOUS
     Route: 058
     Dates: start: 20060121, end: 20060122

REACTIONS (1)
  - DRUG PRESCRIBING ERROR [None]
